FAERS Safety Report 6184079-5 (Version None)
Quarter: 2009Q2

REPORT INFORMATION
  Report Type: 
  Country: None (occurrence: None)
  Receive Date: 20090506
  Receipt Date: 20090506
  Transmission Date: 20091009
  Serious: No
  Sender: FDA-Public Use
  Company Number: None

PATIENT
  Sex: Female
  Weight: 71.91 kg

DRUGS (3)
  1. CHANTIX [Suspect]
     Dosage: 1 MG TABLET 1 TREATMENT AS DIRECTED ORAL
     Route: 048
     Dates: start: 20070622, end: 20090506
  2. ATENOLOL [Concomitant]
  3. LISINOPRIL [Concomitant]

REACTIONS (1)
  - DIZZINESS [None]
